FAERS Safety Report 7809293-1 (Version None)
Quarter: 2011Q4

REPORT INFORMATION
  Report Type: 
  Country: None (occurrence: None)
  Receive Date: 20111006
  Receipt Date: 20110920
  Transmission Date: 20120403
  Serious: Yes (Hospitalization)
  Sender: FDA-Public Use
  Company Number: THQ2011A04538

PATIENT
  Age: 78 Year
  Sex: Female

DRUGS (11)
  1. SODIUM RISEDRONATE HYDRATE (ALL OTHER THERAPEUTIC PRODUCTS) [Concomitant]
  2. PRAVASTATIN SODIUM [Suspect]
     Indication: DYSLIPIDAEMIA
     Dosage: 5 MG (5 MG, 1 IN 1 D)
     Dates: start: 20101203, end: 20110728
  3. LANSOPRAZOLE [Concomitant]
  4. ALFACALCIDOL [Concomitant]
  5. CALCIUM L-ASPARTATE HYDRATE (CALCIUM COMPOUNDS) [Concomitant]
  6. LANSOPRAZOLE [Suspect]
     Indication: DUODENAL ULCER
     Dosage: 15 MG (15 MG, 1 IN 1 D) ORAL, 30 MG (30 MG, 1 IN 1 D) ORAL
     Route: 048
     Dates: start: 20110516, end: 20110612
  7. LANSOPRAZOLE [Suspect]
     Indication: GASTRIC ULCER
     Dosage: 15 MG (15 MG, 1 IN 1 D) ORAL, 30 MG (30 MG, 1 IN 1 D) ORAL
     Route: 048
     Dates: start: 20110516, end: 20110612
  8. LANSOPRAZOLE [Suspect]
     Indication: DUODENAL ULCER
     Dosage: 15 MG (15 MG, 1 IN 1 D) ORAL, 30 MG (30 MG, 1 IN 1 D) ORAL
     Route: 048
     Dates: start: 20110613, end: 20110628
  9. LANSOPRAZOLE [Suspect]
     Indication: GASTRIC ULCER
     Dosage: 15 MG (15 MG, 1 IN 1 D) ORAL, 30 MG (30 MG, 1 IN 1 D) ORAL
     Route: 048
     Dates: start: 20110613, end: 20110628
  10. LUVOX [Suspect]
     Indication: DEPRESSION
     Dosage: 50 MCI (25 MCI, 2 IN 1 D) ORAL, 25 MCI (25 MCI, 1 IN 1 D) ORAL
     Route: 048
     Dates: start: 20110725, end: 20110729
  11. LUVOX [Suspect]
     Indication: DEPRESSION
     Dosage: 50 MCI (25 MCI, 2 IN 1 D) ORAL, 25 MCI (25 MCI, 1 IN 1 D) ORAL
     Route: 048
     Dates: start: 20110425, end: 20110724

REACTIONS (3)
  - DUODENAL ULCER [None]
  - GASTRIC ULCER [None]
  - EOSINOPHILIC PNEUMONIA CHRONIC [None]
